FAERS Safety Report 4913007-2 (Version None)
Quarter: 2006Q1

REPORT INFORMATION
  Report Type: 
  Country: None (occurrence: None)
  Receive Date: 20060215
  Receipt Date: 20060201
  Transmission Date: 20060701
  Serious: Yes (Other)
  Sender: FDA-Public Use
  Company Number: US-KINGPHARMUSA00001-K200600126

PATIENT
  Age: 62 Year
  Sex: Male

DRUGS (6)
  1. ALTACE [Suspect]
     Indication: HYPERTENSION
     Dosage: 2.5 MG, QD
     Route: 048
     Dates: start: 20000101
  2. ALTACE [Suspect]
     Dosage: 5 MG, QD
     Route: 048
     Dates: end: 20050601
  3. ASPIRIN [Concomitant]
     Route: 048
  4. AVANDIA [Concomitant]
     Indication: DIABETES MELLITUS
     Route: 048
  5. METFORMIN [Concomitant]
     Indication: DIABETES MELLITUS
     Route: 048
  6. BETA BLOCKING AGENTS [Concomitant]
     Indication: CARDIAC DISORDER
     Route: 048

REACTIONS (4)
  - CARDIAC FAILURE CONGESTIVE [None]
  - DYSPNOEA [None]
  - HAEMOGLOBIN DECREASED [None]
  - SWELLING [None]
